FAERS Safety Report 8993703 (Version 2)
Quarter: 2013Q1

REPORT INFORMATION
  Report Type: Spontaneous
  Country: US (occurrence: US)
  Receive Date: 20130102
  Receipt Date: 20130204
  Transmission Date: 20140127
  Serious: No
  Sender: FDA-Public Use
  Company Number: US-AMGEN-USASP2012084118

PATIENT
  Age: 52 Year
  Sex: Male

DRUGS (4)
  1. ENBREL [Suspect]
     Indication: RHEUMATOID ARTHRITIS
     Dosage: 50 MG, QWK
     Dates: start: 20120106, end: 20121225
  2. METHOTREXATE [Concomitant]
     Indication: RHEUMATOID ARTHRITIS
     Dosage: 2.5 MG, QWK (8 TABS WEEKLY)
     Route: 048
     Dates: end: 20121225
  3. PREDNISONE [Concomitant]
     Dosage: 1 MG, QD
     Route: 048
  4. LEFLUNOMIDE [Concomitant]
     Dosage: 10 MG, QD
     Route: 048
     Dates: end: 20121225

REACTIONS (1)
  - Bronchitis [Recovering/Resolving]
